FAERS Safety Report 8144642-9 (Version None)
Quarter: 2012Q1

REPORT INFORMATION
  Report Type: 
  Country: None (occurrence: None)
  Receive Date: 20120217
  Receipt Date: 20120213
  Transmission Date: 20120608
  Serious: Yes (Life-Threatening, Hospitalization)
  Sender: FDA-Public Use
  Company Number: DK-B.I. PHARMACEUTICALS,INC./RIDGEFIELD-2012-SW-00113DB

PATIENT
  Sex: Male
  Weight: 150 kg

DRUGS (7)
  1. CORDAN [Concomitant]
     Indication: ATRIAL FIBRILLATION
  2. POTASSIUM CHLORIDE [Concomitant]
     Route: 048
  3. RAMIPRIL [Concomitant]
     Indication: HYPERTENSION
     Dosage: 10 MG
     Route: 048
  4. FUROSEMIDE [Concomitant]
     Dosage: 120 MG
     Route: 048
  5. PRADAXA [Suspect]
     Indication: ATRIAL FIBRILLATION
     Dosage: 300 MG
     Route: 048
     Dates: start: 20111107
  6. SPIRONOLACTONE [Concomitant]
     Dosage: 50 MG
     Route: 048
  7. METOPROLOL SUCCINATE [Concomitant]
     Indication: ATRIAL FIBRILLATION

REACTIONS (10)
  - INTESTINAL GANGRENE [None]
  - SPLENIC INFARCTION [None]
  - ABDOMINAL PAIN [None]
  - COLECTOMY [None]
  - INTESTINAL ISCHAEMIA [None]
  - RENAL INFARCT [None]
  - ACUTE ABDOMEN [None]
  - GASTROINTESTINAL NECROSIS [None]
  - CEREBRAL INFARCTION [None]
  - DIARRHOEA HAEMORRHAGIC [None]
